FAERS Safety Report 6134762-2 (Version None)
Quarter: 2009Q1

REPORT INFORMATION
  Report Type: 
  Country: None (occurrence: None)
  Receive Date: 20090325
  Receipt Date: 20090312
  Transmission Date: 20090719
  Serious: No
  Sender: FDA-Public Use
  Company Number: 2009-192723-NL

PATIENT
  Age: 33 Year
  Sex: Female

DRUGS (2)
  1. ETONOGESTREL [Suspect]
     Dosage: DF
     Dates: start: 20020401, end: 20050201
  2. ETONOGESTREL [Suspect]
     Dosage: DF
     Dates: start: 20061016, end: 20061022

REACTIONS (17)
  - ADJUSTMENT DISORDER [None]
  - ANXIETY [None]
  - BURNING SENSATION [None]
  - CARPAL TUNNEL SYNDROME [None]
  - DEPRESSED MOOD [None]
  - ECONOMIC PROBLEM [None]
  - IMPLANT SITE HAEMATOMA [None]
  - IMPLANT SITE PAIN [None]
  - LOSS OF LIBIDO [None]
  - MULTIPLE INJURIES [None]
  - MUSCULOSKELETAL PAIN [None]
  - NERVE INJURY [None]
  - OEDEMA PERIPHERAL [None]
  - PAIN IN EXTREMITY [None]
  - PSYCHOGENIC PAIN DISORDER [None]
  - SOCIAL AVOIDANT BEHAVIOUR [None]
  - WEIGHT INCREASED [None]
